FAERS Safety Report 12758904 (Version 1)
Quarter: 2016Q3

REPORT INFORMATION
  Report Type: Spontaneous
  Country: US (occurrence: US)
  Receive Date: 20160919
  Receipt Date: 20160919
  Transmission Date: 20161109
  Serious: No
  Sender: FDA-Public Use
  Company Number: US-ASTELLAS-2015US046572

PATIENT
  Age: 89 Year
  Sex: Male

DRUGS (1)
  1. XTANDI [Suspect]
     Active Substance: ENZALUTAMIDE
     Indication: PROSTATE CANCER METASTATIC
     Dosage: 160 MG (4 X 40 MG), ONCE DAILY
     Route: 048
     Dates: start: 20151123, end: 20160315

REACTIONS (6)
  - Diarrhoea [Unknown]
  - Drug ineffective [Unknown]
  - Arthritis [Recovering/Resolving]
  - Faeces discoloured [Recovering/Resolving]
  - Blood pressure decreased [Recovering/Resolving]
  - Epistaxis [Unknown]

NARRATIVE: CASE EVENT DATE: 20160315
